FAERS Safety Report 7592320-7 (Version None)
Quarter: 2011Q3

REPORT INFORMATION
  Report Type: 
  Country: None (occurrence: None)
  Receive Date: 20110706
  Receipt Date: 20110622
  Transmission Date: 20111222
  Serious: Yes (Hospitalization)
  Sender: FDA-Public Use
  Company Number: US-JNJFOC-20110606532

PATIENT
  Sex: Female
  Weight: 64.2 kg

DRUGS (14)
  1. REMICADE [Suspect]
     Indication: INFLAMMATORY BOWEL DISEASE
     Route: 042
     Dates: start: 20060511
  2. REMICADE [Suspect]
     Route: 042
     Dates: start: 20110418
  3. LACTOBACILLUS [Concomitant]
  4. CITRACAL [Concomitant]
  5. PROBIOTICS [Concomitant]
  6. CIPROFLOXACIN HCL [Concomitant]
  7. FLAGYL [Concomitant]
  8. ALBUTEROL SULFATE AUTOHALER [Concomitant]
     Route: 055
  9. CULTURELLE [Concomitant]
  10. FISH OIL [Concomitant]
  11. MULTIPLE VITAMIN [Concomitant]
  12. FOLIC ACID [Concomitant]
  13. VITAMIN D [Concomitant]
  14. MESALAMINE [Concomitant]

REACTIONS (1)
  - RECTAL ABSCESS [None]
